FAERS Safety Report 18600026 (Version 1)
Quarter: 2020Q4

REPORT INFORMATION
  Report Type: Spontaneous
  Country: CN (occurrence: CN)
  Receive Date: 20201210
  Receipt Date: 20201210
  Transmission Date: 20210114
  Serious: Yes (Other)
  Sender: FDA-Public Use
  Company Number: CN-PFIZER INC-2020481822

PATIENT
  Age: 65 Year
  Sex: Male
  Weight: 72.5 kg

DRUGS (10)
  1. CEFTIZOXIME SODIUM [Suspect]
     Active Substance: CEFTIZOXIME SODIUM
     Indication: INFECTION PROPHYLAXIS
     Dosage: 3 G, 2X/DAY
     Route: 041
     Dates: start: 20201107, end: 20201111
  2. PACLITAXEL. [Concomitant]
     Active Substance: PACLITAXEL
     Indication: CHEMOTHERAPY
     Dosage: (ALBUMIN BOUND) 400 MG IVGTT (D1)
     Route: 041
     Dates: start: 20201116
  3. DYNASTAT [Suspect]
     Active Substance: PARECOXIB SODIUM
     Indication: PAIN
  4. LANSOPRAZOLE. [Suspect]
     Active Substance: LANSOPRAZOLE
     Indication: PROPHYLAXIS
     Dosage: 30 MG, 1X/DAY
     Route: 041
     Dates: start: 20201107, end: 20201119
  5. SHEN MAI ZHU SHE YE [Concomitant]
     Active Substance: HERBALS
     Indication: ADJUVANT THERAPY
     Dosage: 100 ML, 1X/DAY
     Route: 041
     Dates: start: 20201107, end: 20201119
  6. TISLELIZUMAB [Concomitant]
     Active Substance: TISLELIZUMAB
     Indication: CHEMOTHERAPY
     Dosage: 200 MG IVGTT (D1)
     Route: 041
     Dates: start: 20201116
  7. CARBOPLATIN. [Concomitant]
     Active Substance: CARBOPLATIN
     Indication: CHEMOTHERAPY
     Dosage: 600 MG IVGTT (D1)
     Route: 041
     Dates: start: 20201116
  8. DYNASTAT [Suspect]
     Active Substance: PARECOXIB SODIUM
     Indication: INFLAMMATION
     Dosage: 40 MG, 2X/DAY
     Route: 042
     Dates: start: 20201107, end: 20201119
  9. CELEBREX [Suspect]
     Active Substance: CELECOXIB
     Indication: INFLAMMATION
     Dosage: 0.2 G, 2X/DAY
     Route: 048
     Dates: start: 20201110, end: 20201119
  10. CELEBREX [Suspect]
     Active Substance: CELECOXIB
     Indication: PAIN

REACTIONS (6)
  - Protein total decreased [Unknown]
  - Hepatic function abnormal [Unknown]
  - Gamma-glutamyltransferase increased [Unknown]
  - Blood albumin decreased [Unknown]
  - Aspartate aminotransferase increased [Unknown]
  - Alanine aminotransferase increased [Unknown]

NARRATIVE: CASE EVENT DATE: 20201113
